FAERS Safety Report 4743920-0 (Version None)
Quarter: 2005Q3

REPORT INFORMATION
  Report Type: 
  Country: None (occurrence: None)
  Receive Date: 20050809
  Receipt Date: 20050729
  Transmission Date: 20060218
  Serious: Yes (Hospitalization, Other)
  Sender: FDA-Public Use
  Company Number: HQWYE334502APR04

PATIENT
  Sex: Female

DRUGS (5)
  1. PANTOZOL                                     (PANTOPRAZOLE) [Suspect]
     Indication: PROPHYLAXIS
     Dosage: 20 MG SOME TIME (S) PER DAY ORAL
     Route: 048
     Dates: start: 20040218, end: 20040301
  2. PANTOZOL                                     (PANTOPRAZOLE) [Suspect]
     Indication: REFLUX OESOPHAGITIS
     Dosage: 20 MG SOME TIME (S) PER DAY ORAL
     Route: 048
     Dates: start: 20040218, end: 20040301
  3. MARCUMAR [Concomitant]
  4. PREDNISONE TAB [Concomitant]
  5. PREDNISONE TAB [Concomitant]

REACTIONS (5)
  - BLOOD BILIRUBIN INCREASED [None]
  - CHOLANGITIS [None]
  - CHOLESTASIS [None]
  - TRANSAMINASES INCREASED [None]
  - VANISHING BILE DUCT SYNDROME [None]
